FAERS Safety Report 18004762 (Version 3)
Quarter: 2021Q3

REPORT INFORMATION
  Report Type: Spontaneous
  Country: DE (occurrence: DE)
  Receive Date: 20200709
  Receipt Date: 20210721
  Transmission Date: 20211014
  Serious: Yes (Hospitalization, Other)
  Sender: FDA-Public Use
  Company Number: NVSC2020DE190837

PATIENT
  Sex: Female

DRUGS (1)
  1. AZOPT [Suspect]
     Active Substance: BRINZOLAMIDE
     Indication: CATARACT
     Dosage: 1?0?1, BID (STARTED 5 YEARS AGO)
     Route: 065

REACTIONS (8)
  - Muscle twitching [Not Recovered/Not Resolved]
  - Product use in unapproved indication [Unknown]
  - Muscle spasms [Recovered/Resolved]
  - Intraocular pressure increased [Unknown]
  - Accident [Unknown]
  - Cyst [Recovered/Resolved]
  - Keratorhexis [Unknown]
  - Intervertebral disc injury [Unknown]

NARRATIVE: CASE EVENT DATE: 201912
